FAERS Safety Report 21702495 (Version 1)
Quarter: 2022Q4

REPORT INFORMATION
  Report Type: Spontaneous
  Country: US (occurrence: US)
  Receive Date: 20221208
  Receipt Date: 20221208
  Transmission Date: 20230112
  Serious: No
  Sender: FDA-Public Use
  Company Number: US-IBSA PHARMA INC.-2022IBS000015

PATIENT

DRUGS (4)
  1. TIROSINT [Suspect]
     Active Substance: LEVOTHYROXINE SODIUM
     Indication: Hypothyroidism
     Dosage: 100 ?G, QD
     Route: 048
     Dates: start: 202109
  2. TIROSINT [Suspect]
     Active Substance: LEVOTHYROXINE SODIUM
     Dosage: 100 ?G, 6 DYAS
     Route: 048
     Dates: start: 202109
  3. TIROSINT [Suspect]
     Active Substance: LEVOTHYROXINE SODIUM
     Dosage: 100 ?G, 5 DAYS
     Route: 048
     Dates: start: 202109
  4. TIROSINT [Suspect]
     Active Substance: LEVOTHYROXINE SODIUM
     Dosage: 75 ?G, QD (7DAYS/WEEK)
     Route: 048
     Dates: start: 202109

REACTIONS (14)
  - Paraesthesia [Unknown]
  - Condition aggravated [Unknown]
  - Small fibre neuropathy [Unknown]
  - Myalgia [Unknown]
  - Asthenia [Unknown]
  - Lethargy [Unknown]
  - Somnolence [Unknown]
  - Mood altered [Unknown]
  - Onychoclasis [Unknown]
  - Blood thyroid stimulating hormone abnormal [Unknown]
  - Fatigue [Unknown]
  - Arthralgia [Unknown]
  - Hyperhidrosis [Unknown]
  - Alopecia [Unknown]
